FAERS Safety Report 22068730 (Version 1)
Quarter: 2023Q1

REPORT INFORMATION
  Report Type: Spontaneous
  Country: US (occurrence: None)
  Receive Date: 20230306
  Receipt Date: 20230306
  Transmission Date: 20230418
  Serious: No
  Sender: FDA-Public Use
  Company Number: None

PATIENT
  Sex: Female
  Weight: 58.06 kg

DRUGS (19)
  1. IBRANCE [Suspect]
     Active Substance: PALBOCICLIB
     Indication: Breast cancer female
     Dosage: 100MG DAILLY ORAL 21 DAYS ON,  7D OFF?
     Route: 050
     Dates: start: 20230210
  2. ASPIRIN [Concomitant]
     Active Substance: ASPIRIN
  3. Benadryl Allergy Childrens [Concomitant]
  4. CETIRIZINE [Concomitant]
  5. CITALOPRAM [Concomitant]
     Active Substance: CITALOPRAM HYDROBROMIDE
  6. FEMARA [Concomitant]
     Active Substance: LETROZOLE
  7. FISH OIL [Concomitant]
     Active Substance: FISH OIL
  8. LORAZEPAM [Concomitant]
     Active Substance: LORAZEPAM
  9. LETROZOLE [Concomitant]
     Active Substance: LETROZOLE
  10. LEVOTHYROXINE [Concomitant]
     Active Substance: LEVOTHYROXINE
  11. METOCLOPRAMIDE [Concomitant]
     Active Substance: METOCLOPRAMIDE
  12. PANTOPRAZOLE [Concomitant]
     Active Substance: PANTOPRAZOLE
  13. PANTOPRAZOLE [Concomitant]
     Active Substance: PANTOPRAZOLE
  14. PROPRANOLOL [Concomitant]
     Active Substance: PROPRANOLOL HYDROCHLORIDE
  15. SOLIFENACIN [Concomitant]
  16. TEMAZEPAM [Concomitant]
     Active Substance: TEMAZEPAM
  17. Vitamin B Complex Combination [Concomitant]
  18. VITAMIN D3 [Concomitant]
     Active Substance: CHOLECALCIFEROL
  19. XGEVA [Concomitant]
     Active Substance: DENOSUMAB

REACTIONS (1)
  - Full blood count decreased [None]
